FAERS Safety Report 7461182-0 (Version None)
Quarter: 2011Q2

REPORT INFORMATION
  Report Type: 
  Country: None (occurrence: None)
  Receive Date: 20110505
  Receipt Date: 20110426
  Transmission Date: 20111010
  Serious: Yes (Other)
  Sender: FDA-Public Use
  Company Number: US-ASTRAZENECA-2011SE24382

PATIENT
  Age: 69 Year
  Sex: Male
  Weight: 95.7 kg

DRUGS (8)
  1. ASPIRIN [Concomitant]
  2. METOPROLOL SUCCINATE [Concomitant]
  3. PLAVIX [Concomitant]
  4. LOSARTEN [Concomitant]
  5. CRESTOR [Suspect]
     Indication: HYPERCHOLESTEROLAEMIA
     Route: 048
     Dates: start: 20030101
  6. CRESTOR [Suspect]
     Route: 048
     Dates: start: 20050101
  7. CRESTOR [Suspect]
     Indication: HYPERTRIGLYCERIDAEMIA
     Route: 048
     Dates: start: 20030101
  8. CRESTOR [Suspect]
     Route: 048
     Dates: start: 20050101

REACTIONS (2)
  - STENT PLACEMENT [None]
  - BLOOD GLUCOSE INCREASED [None]
